FAERS Safety Report 16499453 (Version 2)
Quarter: 2019Q3

REPORT INFORMATION
  Report Type: Spontaneous
  Country: US (occurrence: US)
  Receive Date: 20190701
  Receipt Date: 20190719
  Transmission Date: 20191004
  Serious: Yes (Death, Hospitalization, Other)
  Sender: FDA-Public Use
  Company Number: US-SA-2019SA175823

PATIENT
  Age: 68 Year
  Sex: Female

DRUGS (37)
  1. VITAMINS NOS [Concomitant]
     Active Substance: VITAMINS
  2. PREDNISONE. [Concomitant]
     Active Substance: PREDNISONE
  3. GAVILYTE G [Concomitant]
     Active Substance: POLYETHYLENE GLYCOL 3350\POTASSIUM CHLORIDE\SODIUM BICARBONATE\SODIUM CHLORIDE\SODIUM SULFATE ANHYDROUS
  4. FUROSEMIDE. [Concomitant]
     Active Substance: FUROSEMIDE
  5. LEVALBUTEROL HCL [Concomitant]
     Active Substance: LEVALBUTEROL HYDROCHLORIDE
  6. HYDROCODONE/ACETAMINOPHEN [Concomitant]
     Active Substance: ACETAMINOPHEN\HYDROCODONE
  7. DUPIXENT [Suspect]
     Active Substance: DUPILUMAB
     Indication: ASTHMA
     Dosage: 300 MG, QOW
     Route: 058
     Dates: start: 20190605
  8. VITAMIN D3 [Concomitant]
     Active Substance: CHOLECALCIFEROL
  9. ALVESCO [Concomitant]
     Active Substance: CICLESONIDE
  10. HUMALOG [Concomitant]
     Active Substance: INSULIN LISPRO
  11. AZITHROMYCIN ANHYDROUS. [Concomitant]
     Active Substance: AZITHROMYCIN ANHYDROUS
  12. MONTELUKAST SODIUM. [Concomitant]
     Active Substance: MONTELUKAST SODIUM
  13. PROCTOSOL HC [Concomitant]
  14. DEXILANT [Concomitant]
     Active Substance: DEXLANSOPRAZOLE
  15. VITAMIN B12 [VITAMIN B12 NOS] [Concomitant]
     Active Substance: CYANOCOBALAMIN
  16. LANTUS [Concomitant]
     Active Substance: INSULIN GLARGINE
  17. ALPRAZOLAM. [Concomitant]
     Active Substance: ALPRAZOLAM
  18. TOPROL XL [Concomitant]
     Active Substance: METOPROLOL SUCCINATE
  19. LACTULOSE. [Concomitant]
     Active Substance: LACTULOSE
  20. TEMAZEPAM. [Concomitant]
     Active Substance: TEMAZEPAM
  21. ONDANSETRON [Concomitant]
     Active Substance: ONDANSETRON
  22. FLUCONAZOLE. [Concomitant]
     Active Substance: FLUCONAZOLE
  23. GLIMEPIRIDE. [Concomitant]
     Active Substance: GLIMEPIRIDE
  24. LINZESS [Concomitant]
     Active Substance: LINACLOTIDE
  25. HYDROCORTISONE ACETATE. [Concomitant]
     Active Substance: HYDROCORTISONE ACETATE
  26. SPIRIVA RESPIMAT [Concomitant]
     Active Substance: TIOTROPIUM BROMIDE
  27. NARCAN [Concomitant]
     Active Substance: NALOXONE HYDROCHLORIDE
  28. BACLOFEN. [Concomitant]
     Active Substance: BACLOFEN
  29. SYMBICORT [Concomitant]
     Active Substance: BUDESONIDE\FORMOTEROL FUMARATE DIHYDRATE
  30. RAMIPRIL. [Concomitant]
     Active Substance: RAMIPRIL
  31. RESTASIS [Concomitant]
     Active Substance: CYCLOSPORINE
  32. METHYLPREDNISOLONE. [Concomitant]
     Active Substance: METHYLPREDNISOLONE
  33. NYSTATIN. [Concomitant]
     Active Substance: NYSTATIN
  34. PHENAZOPYRIDINE HYDROCHLORIDE. [Concomitant]
     Active Substance: PHENAZOPYRIDINE HYDROCHLORIDE
  35. CRESEMBA [Concomitant]
     Active Substance: ISAVUCONAZONIUM SULFATE
  36. FASENRA [Concomitant]
     Active Substance: BENRALIZUMAB
  37. NITROFURANTOIN MONOHYDRATE MACROCRYSTALS [Concomitant]
     Active Substance: NITROFURANTOIN\NITROFURANTOIN MONOHYDRATE

REACTIONS (6)
  - Death [Fatal]
  - Apnoea [Unknown]
  - Catheterisation cardiac [Unknown]
  - Dyspnoea [Unknown]
  - Bronchospasm [Unknown]
  - Stent placement [Unknown]

NARRATIVE: CASE EVENT DATE: 201906
